FAERS Safety Report 8124322-6 (Version None)
Quarter: 2012Q1

REPORT INFORMATION
  Report Type: 
  Country: None (occurrence: None)
  Receive Date: 20120209
  Receipt Date: 20120130
  Transmission Date: 20120608
  Serious: Yes (Other)
  Sender: FDA-Public Use
  Company Number: AU-JNJFOC-20120113477

PATIENT
  Sex: Female

DRUGS (7)
  1. CALCIUM [Concomitant]
     Route: 065
  2. REMICADE [Suspect]
     Route: 042
     Dates: start: 20111219
  3. METHOTREXATE [Concomitant]
     Route: 065
  4. SPAN K [Concomitant]
     Route: 065
  5. FOLIC ACID [Concomitant]
     Route: 065
  6. COLAZIDE [Concomitant]
     Route: 065
  7. REMICADE [Suspect]
     Indication: PSORIATIC ARTHROPATHY
     Route: 042
     Dates: start: 20090330

REACTIONS (2)
  - SINUSITIS [None]
  - LACERATION [None]
